FAERS Safety Report 19478295 (Version 1)
Quarter: 2021Q2

REPORT INFORMATION
  Report Type: Other
  Country: US (occurrence: US)
  Receive Date: 20210630
  Receipt Date: 20210630
  Transmission Date: 20210717
  Serious: No
  Sender: FDA-Public Use
  Company Number: US-ASCENT PHARMACEUTICALS, INC.-2113317

PATIENT
  Age: 11 Year
  Sex: Male
  Weight: 36.36 kg

DRUGS (3)
  1. METHYLPHENIDATE HYDROCHLORIDE EXTENDED?RELEASE [Suspect]
     Active Substance: METHYLPHENIDATE HYDROCHLORIDE
     Indication: ATTENTION DEFICIT HYPERACTIVITY DISORDER
     Route: 048
     Dates: start: 20210317
  2. CLONIDINE. [Concomitant]
     Active Substance: CLONIDINE
     Route: 065
  3. PROZAC [Concomitant]
     Active Substance: FLUOXETINE HYDROCHLORIDE
     Route: 065

REACTIONS (2)
  - Abnormal behaviour [Recovered/Resolved]
  - Drug ineffective [Recovered/Resolved]
